FAERS Safety Report 4740424-6 (Version None)
Quarter: 2005Q3

REPORT INFORMATION
  Report Type: 
  Country: None (occurrence: None)
  Receive Date: 20050805
  Receipt Date: 20050802
  Transmission Date: 20060218
  Serious: Yes (Life-Threatening)
  Sender: FDA-Public Use
  Company Number: A044-002-005697

PATIENT
  Age: 68 Year
  Sex: Female

DRUGS (4)
  1. ARICEPT [Suspect]
     Indication: DEMENTIA
     Dosage: 5 MG, 1 IN 1 D, ORAL
     Route: 048
     Dates: end: 20050711
  2. CITALOPRAM (CITALOPRAM) [Suspect]
     Dosage: 20 MG, 1 IN 1 D, ORAL
     Route: 048
  3. NOVALGIN (METAMIZOLE SODIUM) [Suspect]
     Dosage: 500 MG, 1 IN 1 D, ORAL
     Route: 048
  4. IBUPROFEN [Suspect]
     Dosage: 300 MG, 1 IN 1 D, ORAL

REACTIONS (2)
  - AGRANULOCYTOSIS [None]
  - STREPTOCOCCAL SEPSIS [None]
